FAERS Safety Report 8538141-X (Version None)
Quarter: 2012Q3

REPORT INFORMATION
  Report Type: 
  Country: None (occurrence: None)
  Receive Date: 20120726
  Receipt Date: 20120721
  Transmission Date: 20120928
  Serious: Yes (Hospitalization)
  Sender: FDA-Public Use
  Company Number: CO-BIOMARINP-002752

PATIENT
  Age: 18 Year
  Sex: Female

DRUGS (1)
  1. NAGLAZYME [Suspect]
     Indication: MUCOPOLYSACCHARIDOSIS VI
     Route: 041
     Dates: start: 20100930

REACTIONS (6)
  - BRONCHITIS [None]
  - BRONCHIAL OEDEMA [None]
  - CARDIO-RESPIRATORY ARREST [None]
  - RESPIRATORY TRACT OEDEMA [None]
  - AEROMONA INFECTION [None]
  - CONVULSION [None]
